FAERS Safety Report 18601486 (Version 1)
Quarter: 2020Q4

REPORT INFORMATION
  Report Type: Spontaneous
  Country: KR (occurrence: KR)
  Receive Date: 20201210
  Receipt Date: 20201210
  Transmission Date: 20210114
  Serious: Yes (Other)
  Sender: FDA-Public Use
  Company Number: KR-TAKEDA-2020TUS056632

PATIENT
  Age: 67 Year
  Sex: Male

DRUGS (3)
  1. BORTEZOMIB. [Suspect]
     Active Substance: BORTEZOMIB
     Indication: PRODUCT USED FOR UNKNOWN INDICATION
     Dosage: UNK
     Route: 065
     Dates: start: 20161104, end: 20170310
  2. MELPHALAN. [Suspect]
     Active Substance: MELPHALAN
     Indication: PRODUCT USED FOR UNKNOWN INDICATION
     Dosage: UNK
     Route: 065
     Dates: start: 20161104, end: 20170310
  3. PREDNISOLONE. [Suspect]
     Active Substance: PREDNISOLONE
     Indication: PRODUCT USED FOR UNKNOWN INDICATION
     Dosage: UNK
     Route: 065
     Dates: start: 20161104, end: 20170310

REACTIONS (11)
  - Chills [Unknown]
  - Pruritus [Unknown]
  - Drug intolerance [Unknown]
  - Extradural abscess [Unknown]
  - Rash [Unknown]
  - Herpes zoster [Unknown]
  - Cellulitis orbital [Unknown]
  - Dyspnoea exertional [Unknown]
  - Sinus node dysfunction [Unknown]
  - Interstitial lung disease [Unknown]
  - Peripheral sensory neuropathy [Unknown]
